FAERS Safety Report 21876830 (Version 10)
Quarter: 2024Q3

REPORT INFORMATION
  Report Type: Spontaneous
  Country: GB (occurrence: GB)
  Receive Date: 20230118
  Receipt Date: 20240906
  Transmission Date: 20241017
  Serious: Yes (Other)
  Sender: CELLTRION
  Company Number: GB-CELLTRION INC.-2023GB000659

PATIENT

DRUGS (19)
  1. RITUXIMAB [Suspect]
     Active Substance: RITUXIMAB
     Indication: Richter^s syndrome
     Dosage: ADDITIONAL INFORMATION ON DRUG (FREE TEXT): ADDITIONAL INFO: ROUTE:UNKNOWN
     Dates: start: 20190111, end: 20200106
  2. RITUXIMAB [Suspect]
     Active Substance: RITUXIMAB
     Dosage: ADDITIONAL INFORMATION ON DRUG (FREE TEXT): ADDITIONAL INFO: ROUTE:UNKNOWN
     Dates: start: 20200107, end: 20200110
  3. RITUXIMAB [Suspect]
     Active Substance: RITUXIMAB
     Dosage: ADDITIONAL INFORMATION ON DRUG (FREE TEXT): ADDITIONAL INFO: ROUTE:UNKNOWN
     Dates: start: 20210108, end: 20210109
  4. RITUXIMAB [Suspect]
     Active Substance: RITUXIMAB
     Dosage: ADDITIONAL INFORMATION ON DRUG (FREE TEXT): ADDITIONAL INFO: ROUTE:UNKNOWN
     Dates: start: 20150109, end: 20160201
  5. BENDAMUSTINE HYDROCHLORIDE [Suspect]
     Active Substance: BENDAMUSTINE HYDROCHLORIDE
     Indication: Richter^s syndrome
     Dosage: FREQUENCY: ONCE DAILY (ADDITIONAL INFO: ROUTE:UNKNOWN)
     Route: 042
     Dates: start: 20210108, end: 20210109
  6. CARBOPLATIN [Suspect]
     Active Substance: CARBOPLATIN
     Indication: Richter^s syndrome
     Dosage: ADDITIONAL INFO: ROUTE:UNKNOWN ROUTE:UNKNOWN
     Dates: start: 20200111, end: 20210101
  7. CISPLATIN [Suspect]
     Active Substance: CISPLATIN
     Indication: Richter^s syndrome
     Dosage: ADDITIONAL INFO: ROUTE:UNKNOWN
     Dates: start: 20200111, end: 20210101
  8. CYCLOPHOSPHAMIDE [Suspect]
     Active Substance: CYCLOPHOSPHAMIDE
     Indication: Richter^s syndrome
     Dosage: ADDITIONAL INFO: ROUTE:UNKNOWN
     Dates: start: 20150109, end: 20160102
  9. CYCLOPHOSPHAMIDE [Suspect]
     Active Substance: CYCLOPHOSPHAMIDE
     Dosage: ADDITIONAL INFO: ROUTE:UNKNOWN
     Dates: start: 20200106, end: 20200110
  10. DOXORUBICIN HYDROCHLORIDE [Suspect]
     Active Substance: DOXORUBICIN HYDROCHLORIDE
     Indication: Richter^s syndrome
     Dosage: ADDITIONAL INFO: ROUTE:UNKNOWN
     Dates: start: 20200106, end: 20200110
  11. FLUDARABINE PHOSPHATE [Suspect]
     Active Substance: FLUDARABINE PHOSPHATE
     Indication: Richter^s syndrome
     Dosage: ADDITIONAL INFO: ROUTE:UNKNOWN
     Dates: start: 20150109, end: 20160102
  12. GEMCITABINE HYDROCHLORIDE [Suspect]
     Active Substance: GEMCITABINE HYDROCHLORIDE
     Indication: Richter^s syndrome
     Dosage: ADDITIONAL INFO: ROUTE:UNKNOWN
     Dates: start: 20200111, end: 20210101
  13. IMBRUVICA [Suspect]
     Active Substance: IBRUTINIB
     Indication: Richter^s syndrome
     Dosage: UNK/ ADDITIONAL INFO: ROUTE:UNKNOWN
     Route: 048
     Dates: start: 20200106, end: 20200110
  14. IMBRUVICA [Suspect]
     Active Substance: IBRUTINIB
     Dosage: START DATE: 2020
     Route: 048
  15. OXALIPLATIN [Suspect]
     Active Substance: OXALIPLATIN
     Indication: Richter^s syndrome
     Dosage: ADDITIONAL INFO: ROUTE:UNKNOWN
     Dates: start: 20200111, end: 20210101
  16. POLATUZUMAB VEDOTIN [Suspect]
     Active Substance: POLATUZUMAB VEDOTIN
     Indication: Richter^s syndrome
     Dosage: ADDITIONAL INFO: ROUTE:UNKNOWN ROUTE:UNKNOWN ROUTE:UNKNOWN ROUTE:UNKNOWN
     Dates: start: 20210108, end: 20210109
  17. PREDNISONE [Suspect]
     Active Substance: PREDNISONE
     Indication: Richter^s syndrome
     Dosage: SOLUTION/ADDITIONAL INFO: ROUTE:UNKNOWN
     Dates: start: 20200106, end: 20200110
  18. VENETOCLAX [Suspect]
     Active Substance: VENETOCLAX
     Indication: Richter^s syndrome
     Dosage: ADDITIONAL INFO: ROUTE:UNKNOWN
     Route: 048
     Dates: start: 20190111, end: 20200106
  19. VINCRISTINE SULFATE [Suspect]
     Active Substance: VINCRISTINE SULFATE
     Indication: Richter^s syndrome
     Dosage: ADDITIONAL INFO: ROUTE:UNKNOWN
     Dates: start: 20200106, end: 20200110

REACTIONS (2)
  - Malignant neoplasm progression [Unknown]
  - Off label use [Unknown]

NARRATIVE: CASE EVENT DATE: 20210108
